FAERS Safety Report 9005243 (Version 1)
Quarter: 2013Q1

REPORT INFORMATION
  Report Type: Spontaneous
  Country: CH (occurrence: CH)
  Receive Date: 20130108
  Receipt Date: 20130108
  Transmission Date: 20140127
  Serious: Yes (Hospitalization)
  Sender: FDA-Public Use
  Company Number: CH-NOVOPROD-367865

PATIENT
  Age: 79 Year
  Sex: Male
  Weight: 85 kg

DRUGS (4)
  1. NOVOMIX 30 [Suspect]
     Indication: TYPE 2 DIABETES MELLITUS
     Route: 058
     Dates: end: 20121207
  2. ASPIRIN CARDIO [Concomitant]
     Route: 048
  3. PRAVASTATIN [Concomitant]
     Route: 048
  4. XATRAL [Concomitant]
     Route: 048

REACTIONS (3)
  - Somnolence [Recovered/Resolved]
  - Hypoglycaemia [Recovered/Resolved]
  - Sinus bradycardia [Unknown]
